FAERS Safety Report 8523498-6 (Version None)
Quarter: 2012Q3

REPORT INFORMATION
  Report Type: 
  Country: None (occurrence: None)
  Receive Date: 20120720
  Receipt Date: 20120709
  Transmission Date: 20120928
  Serious: Yes (Hospitalization)
  Sender: FDA-Public Use
  Company Number: JP-JNJFOC-20111211300

PATIENT
  Sex: Female
  Weight: 56 kg

DRUGS (77)
  1. TAPENTADOL HYDROCHLORIDE [Suspect]
     Dosage: PER DAY
     Route: 048
     Dates: start: 20111207, end: 20111217
  2. GEMCITABINE HYDROCHLORIDE [Suspect]
     Indication: CHEMOTHERAPY
     Dosage: 1 PER 1 DAY
     Route: 041
     Dates: start: 20111220, end: 20111220
  3. GEMCITABINE HYDROCHLORIDE [Suspect]
     Dosage: 1 PER 1 DAY
     Route: 041
     Dates: start: 20111206, end: 20111206
  4. WARFARIN SODIUM [Concomitant]
     Indication: PELVIC VENOUS THROMBOSIS
     Dosage: 1 PER 1 DAY
     Route: 048
     Dates: end: 20111224
  5. PROCHLORPERAZINE [Concomitant]
     Indication: PROPHYLAXIS OF NAUSEA AND VOMITING
     Dosage: 3 PER 1 DAY
     Route: 048
     Dates: start: 20111206, end: 20111220
  6. PROCHLORPERAZINE [Concomitant]
     Dosage: 3 PER 1 DAY
     Route: 048
     Dates: start: 20111206, end: 20111220
  7. SODIUM CHLORIDE [Concomitant]
     Dosage: 1 PER 1 DAY
     Route: 041
     Dates: start: 20111115, end: 20111115
  8. SODIUM CHLORIDE [Concomitant]
     Dosage: 1 PER 1 DAY
     Route: 041
     Dates: start: 20111129, end: 20111129
  9. SODIUM CHLORIDE [Concomitant]
     Dosage: 1 PER 1 DAY
     Route: 041
     Dates: start: 20111206, end: 20111206
  10. GRANISETRON [Concomitant]
     Dosage: 1 PER 1 DAY
     Route: 041
     Dates: start: 20111129, end: 20111129
  11. DEXAMETHASONE SODIUM PHOSPHATE [Concomitant]
     Indication: CHEMOTHERAPY
     Dosage: 1 PER 1 DAY
     Route: 041
     Dates: start: 20111108, end: 20111108
  12. DEXAMETHASONE SODIUM PHOSPHATE [Concomitant]
     Dosage: 1 PER 1 DAY
     Route: 041
     Dates: start: 20111115, end: 20111115
  13. CHLOR-TRIMETON [Concomitant]
     Indication: CHEMOTHERAPY
     Dosage: 1 PER 1 DAY
     Route: 041
     Dates: start: 20111129, end: 20111129
  14. CHLOR-TRIMETON [Concomitant]
     Dosage: 1 PER 1 DAY
     Route: 041
     Dates: start: 20111108, end: 20111108
  15. MORPHINE [Concomitant]
     Dosage: 3 PER 1 DAY
     Route: 048
     Dates: start: 20111213, end: 20111213
  16. MORPHINE [Concomitant]
     Dosage: 1 PER 1 DAY
     Route: 048
     Dates: start: 20111210, end: 20111211
  17. OXYCODONE HYDROCHLORIDE [Concomitant]
     Indication: CANCER PAIN
     Dosage: AS NEEDED
     Route: 048
     Dates: start: 20111227
  18. POTASSIUM CHLORIDE [Concomitant]
     Indication: FLUID REPLACEMENT
     Dosage: 1 PER 1 DAY
     Route: 041
     Dates: start: 20111229
  19. MEIACT [Concomitant]
     Indication: ECZEMA
     Dosage: 3 PER 1 DAY
     Route: 048
  20. SODIUM CHLORIDE [Concomitant]
     Dosage: 1 PER 1 DAY
     Route: 041
     Dates: start: 20111226, end: 20111228
  21. GRANISETRON [Concomitant]
     Indication: CHEMOTHERAPY
     Dosage: 1 PER 1 DAY
     Route: 041
     Dates: start: 20111108, end: 20111108
  22. DEXAMETHASONE SODIUM PHOSPHATE [Concomitant]
     Dosage: 1 PER 1 DAY
     Route: 041
     Dates: start: 20111129, end: 20111129
  23. DEXAMETHASONE SODIUM PHOSPHATE [Concomitant]
     Dosage: 1 PER 1 DAY
     Route: 041
     Dates: start: 20111220, end: 20111220
  24. RANITIDINE [Concomitant]
     Indication: CHEMOTHERAPY
     Dosage: 1 PER 1 DAY
     Route: 041
     Dates: start: 20111129, end: 20111129
  25. GEMZAR [Concomitant]
     Indication: CHEMOTHERAPY
     Route: 041
     Dates: start: 20111220, end: 20111220
  26. MORPHINE [Concomitant]
     Dosage: 2 PER 1 DAY
     Route: 048
     Dates: start: 20111222, end: 20111222
  27. TAPENTADOL HYDROCHLORIDE [Suspect]
     Dosage: PER DAY
     Route: 048
     Dates: start: 20111221, end: 20111226
  28. LYRICA [Concomitant]
     Indication: NEUROPATHY PERIPHERAL
     Dosage: 2 PER 1 DAY
     Route: 048
     Dates: start: 20111018
  29. BETAMETHASONE [Concomitant]
     Indication: HYDROCEPHALUS
     Route: 048
  30. WARFARIN SODIUM [Concomitant]
     Dosage: 1 PER 1 DAY
     Route: 048
     Dates: start: 20111227
  31. MAGLAX [Concomitant]
     Dosage: AS NEEDED
     Route: 048
     Dates: start: 20111220, end: 20111220
  32. TAXOL [Concomitant]
     Indication: CHEMOTHERAPY
     Route: 041
     Dates: start: 20111220, end: 20111220
  33. MORPHINE [Concomitant]
     Dosage: 4 PER 1 DAY
     Route: 048
     Dates: start: 20111216, end: 20111216
  34. GASCON [Concomitant]
     Indication: ENDOSCOPY SMALL INTESTINE
     Dosage: 1 PER 1 DAY
     Route: 048
     Dates: start: 20111227, end: 20111227
  35. BYSTAGE [Concomitant]
     Indication: SCAN WITH CONTRAST
     Dosage: 1 PER 1 DAY
     Route: 041
     Dates: start: 20120114, end: 20120114
  36. TAPENTADOL HYDROCHLORIDE [Suspect]
     Dosage: PER DAY
     Route: 048
     Dates: start: 20111218, end: 20111218
  37. PACLITAXEL [Suspect]
     Indication: CHEMOTHERAPY
     Dosage: 1 PER 1 DAY
     Route: 041
     Dates: start: 20111220, end: 20111220
  38. PACLITAXEL [Suspect]
     Route: 041
     Dates: start: 20091001, end: 20100201
  39. MAGLAX [Concomitant]
     Indication: CONSTIPATION PROPHYLAXIS
     Dosage: AS NEEDED
     Route: 048
     Dates: start: 20111206, end: 20111219
  40. SODIUM CHLORIDE [Concomitant]
     Indication: CHEMOTHERAPY
     Dosage: 1 PER 1 DAY
     Route: 041
     Dates: start: 20111220, end: 20111220
  41. SODIUM BICARBONATE [Concomitant]
     Indication: ENDOSCOPY SMALL INTESTINE
     Dosage: 1 PER 1 DAY
     Route: 048
     Dates: start: 20111227, end: 20111227
  42. XYLOCAINE [Concomitant]
     Indication: ANAESTHESIA
     Dosage: 1 PER 1 DAY
     Route: 048
     Dates: start: 20111227, end: 20111227
  43. TAPENTADOL HYDROCHLORIDE [Suspect]
     Indication: CANCER PAIN
     Dosage: PER DAY
     Route: 048
     Dates: start: 20111219, end: 20111219
  44. PACLITAXEL [Suspect]
     Dosage: 1 PER 1 DAY
     Route: 041
     Dates: start: 20111108, end: 20111108
  45. PACLITAXEL [Suspect]
     Route: 041
     Dates: start: 20110301
  46. GEMCITABINE HYDROCHLORIDE [Suspect]
     Dosage: 1 PER 1 DAY
     Route: 041
     Dates: start: 20111115, end: 20111115
  47. RESPLEN [Concomitant]
     Indication: COUGH
     Dosage: 3 PER 1 DAY
     Route: 048
  48. MAGLAX [Concomitant]
     Route: 048
     Dates: start: 20111221
  49. RANITIDINE [Concomitant]
     Dosage: 1 PER 1 DAY
     Route: 041
     Dates: start: 20111220, end: 20111220
  50. LECICARBON [Concomitant]
     Indication: CONSTIPATION PROPHYLAXIS
     Route: 054
     Dates: start: 20111224
  51. MORPHINE [Concomitant]
     Dosage: 1 PER 1 DAY
     Route: 048
     Dates: start: 20111223, end: 20111224
  52. MORPHINE [Concomitant]
     Dosage: 5 PER 1 DAY
     Route: 048
     Dates: start: 20111217, end: 20111218
  53. MORPHINE [Concomitant]
     Dosage: 1 PER 1 DAY
     Route: 048
     Dates: start: 20111214, end: 20111214
  54. MORPHINE [Concomitant]
     Dosage: 2 PER 1 DAY
     Route: 048
     Dates: start: 20111212, end: 20111212
  55. TAPENTADOL HYDROCHLORIDE [Suspect]
     Dosage: PER DAY
     Route: 048
     Dates: start: 20111220, end: 20111220
  56. CHLOR-TRIMETON [Concomitant]
     Dosage: 1 PER 1 DAY
     Route: 041
     Dates: start: 20111220, end: 20111220
  57. LACTEC [Concomitant]
     Indication: FLUID REPLACEMENT
     Route: 041
     Dates: start: 20111224, end: 20111224
  58. OXYCONTIN [Concomitant]
     Indication: CANCER PAIN
     Dosage: 2 PER 1 DAY
     Route: 048
     Dates: start: 20111227
  59. PACLITAXEL [Suspect]
     Dosage: 1 PER 1 DAY
     Route: 041
     Dates: start: 20111129, end: 20111129
  60. PACLITAXEL [Suspect]
     Route: 041
     Dates: start: 20110713
  61. GEMCITABINE HYDROCHLORIDE [Suspect]
     Dosage: 1 PER 1 DAY
     Route: 041
     Dates: start: 20111129, end: 20111129
  62. PURSENNID [Concomitant]
     Indication: CONSTIPATION
     Dosage: AS NEEDED
     Route: 048
  63. SODIUM CHLORIDE [Concomitant]
     Dosage: 1 PER 1 DAY
     Route: 041
     Dates: start: 20111108, end: 20111108
  64. GRANISETRON [Concomitant]
     Dosage: 1 PER 1 DAY
     Route: 041
     Dates: start: 20111220, end: 20111220
  65. RANITIDINE [Concomitant]
     Dosage: 1 PER 1 DAY
     Route: 041
     Dates: start: 20111108, end: 20111108
  66. MORPHINE [Concomitant]
     Dosage: 3 PER 1 DAY
     Route: 048
     Dates: start: 20111219, end: 20111220
  67. MORPHINE [Concomitant]
     Dosage: 2 PER 1 DAY
     Route: 048
     Dates: start: 20111215, end: 20111215
  68. DALTEPARIN SODIUM [Concomitant]
     Indication: VENOUS THROMBOSIS
     Route: 041
     Dates: start: 20111226, end: 20111228
  69. PRONASE [Concomitant]
     Dosage: 1 PER 1 DAY
     Route: 048
     Dates: start: 20111227, end: 20111227
  70. HEPARIN SODIUM [Concomitant]
     Indication: ENDOSCOPY SMALL INTESTINE
     Dosage: 1 PER 1 DAY
     Route: 041
     Dates: start: 20111227, end: 20111227
  71. LAC-B [Concomitant]
     Indication: CONSTIPATION PROPHYLAXIS
     Dosage: 3 PER 1 DAY
     Route: 048
     Dates: start: 20111226, end: 20111230
  72. GEMCITABINE HYDROCHLORIDE [Suspect]
     Dosage: 1 PER 1 DAY
     Route: 041
     Dates: start: 20111108, end: 20111108
  73. LANSOPRAZOLE [Concomitant]
     Indication: GASTRITIS PROPHYLAXIS
     Dosage: 1 PER 1 DAY
     Route: 048
  74. BETAMETHASONE [Concomitant]
     Dosage: 2 PER 1 DAY
     Route: 048
  75. DEXAMETHASONE SODIUM PHOSPHATE [Concomitant]
     Dosage: 1 PER 1 DAY
     Route: 041
     Dates: start: 20111206, end: 20111206
  76. LECICARBON [Concomitant]
     Dosage: AS NEEDED
     Route: 054
     Dates: start: 20111222
  77. MORPHINE [Concomitant]
     Dosage: 6 PER 1 DAY
     Route: 048
     Dates: start: 20111221, end: 20111221

REACTIONS (1)
  - INTERSTITIAL LUNG DISEASE [None]
